FAERS Safety Report 6401075-0 (Version None)
Quarter: 2009Q4

REPORT INFORMATION
  Report Type: 
  Country: None (occurrence: None)
  Receive Date: 20091015
  Receipt Date: 20070403
  Transmission Date: 20100525
  Serious: No
  Sender: FDA-Public Use
  Company Number: US-ASTRAZENECA-2007UW01413

PATIENT
  Age: 44 Year
  Sex: Male
  Weight: 152 kg

DRUGS (1)
  1. SEROQUEL [Suspect]
     Route: 048
     Dates: start: 20040419

REACTIONS (3)
  - DIABETES MELLITUS [None]
  - GASTRIC DISORDER [None]
  - SLEEP APNOEA SYNDROME [None]
